FAERS Safety Report 24307455 (Version 1)
Quarter: 2024Q3

REPORT INFORMATION
  Report Type: Spontaneous
  Country: US (occurrence: US)
  Receive Date: 20240911
  Receipt Date: 20240911
  Transmission Date: 20241017
  Serious: No
  Sender: BECTON DICKINSON
  Company Number: US-BECTON DICKINSON-US-BD-24-000063

PATIENT
  Sex: Male

DRUGS (1)
  1. CHLORAPREP [Suspect]
     Active Substance: CHLORHEXIDINE GLUCONATE\ISOPROPYL ALCOHOL
     Indication: Product used for unknown indication
     Dosage: UNK
     Route: 065

REACTIONS (5)
  - Cellulitis [Unknown]
  - Herpes zoster [Unknown]
  - Skin warm [Unknown]
  - Pain [Unknown]
  - Rash [Unknown]

NARRATIVE: CASE EVENT DATE: 20240123
